FAERS Safety Report 10759819 (Version 1)
Quarter: 2015Q1

REPORT INFORMATION
  Report Type: Spontaneous
  Country: SE (occurrence: SE)
  Receive Date: 20150203
  Receipt Date: 20150203
  Transmission Date: 20150721
  Serious: Yes (Other)
  Sender: FDA-Public Use
  Company Number: SE-GLAXOSMITHKLINE-SE2015GSK012905

PATIENT
  Age: 70 Year
  Sex: Female

DRUGS (2)
  1. NEOTIGASON [Suspect]
     Active Substance: ACITRETIN
     Indication: ICHTHYOSIS
     Dosage: 10 MG, QD
     Route: 048
     Dates: start: 20140226, end: 20141001
  2. UREA. [Concomitant]
     Active Substance: UREA

REACTIONS (1)
  - Haemorrhage subcutaneous [Recovered/Resolved]

NARRATIVE: CASE EVENT DATE: 20140527
